FAERS Safety Report 5114252-6 (Version None)
Quarter: 2006Q3

REPORT INFORMATION
  Report Type: 
  Country: None (occurrence: None)
  Receive Date: 20060925
  Receipt Date: 20060914
  Transmission Date: 20061208
  Serious: Yes (Other)
  Sender: FDA-Public Use
  Company Number: BE-BOEHRINGER INGELHEIM PHARMACEUTICALS, INC.-2006-BL-00193BL

PATIENT
  Sex: Female

DRUGS (1)
  1. MOBIC [Suspect]
     Indication: MUSCULOSKELETAL PAIN

REACTIONS (1)
  - PULMONARY EMBOLISM [None]
